FAERS Safety Report 7293935-6 (Version None)
Quarter: 2011Q1

REPORT INFORMATION
  Report Type: 
  Country: None (occurrence: None)
  Receive Date: 20110203
  Receipt Date: 20110118
  Transmission Date: 20110831
  Serious: Yes (Other)
  Sender: FDA-Public Use
  Company Number: 025748

PATIENT
  Age: 60 Year
  Sex: Female

DRUGS (2)
  1. CIMZIA [Suspect]
     Indication: RHEUMATOID ARTHRITIS
     Dosage: LABEL SUBCUTANEOUS
     Route: 058
     Dates: start: 20100401, end: 20110103
  2. METHOTREXATE [Concomitant]

REACTIONS (1)
  - RASH PUSTULAR [None]
